FAERS Safety Report 8204537-9 (Version None)
Quarter: 2012Q1

REPORT INFORMATION
  Report Type: 
  Country: None (occurrence: None)
  Receive Date: 20120313
  Receipt Date: 20120306
  Transmission Date: 20120608
  Serious: Yes (Death)
  Sender: FDA-Public Use
  Company Number: ZA-PFIZER INC-2012061817

PATIENT
  Age: 67 Year
  Sex: Male

DRUGS (10)
  1. VFEND [Suspect]
     Route: 065
  2. FUNGIZONE [Concomitant]
  3. ZYVOX [Concomitant]
  4. MEROPENEM [Concomitant]
  5. CASPOFUNGIN ACETATE [Concomitant]
  6. AMBISOME [Concomitant]
  7. ARMODAFINIL [Concomitant]
  8. ZITHROMAX [Concomitant]
  9. AUGMENTIN '125' [Concomitant]
  10. COLIMYCIN [Concomitant]

REACTIONS (1)
  - ASPERGILLOSIS [None]
